FAERS Safety Report 13032497 (Version 2)
Quarter: 2017Q1

REPORT INFORMATION
  Report Type: Report from Study
  Country: US (occurrence: US)
  Receive Date: 20161215
  Receipt Date: 20170118
  Transmission Date: 20170428
  Serious: Yes (Death, Hospitalization)
  Sender: FDA-Public Use
  Company Number: US-EXELIXIS-CABO-16007735

PATIENT
  Age: 65 Year
  Sex: Female

DRUGS (10)
  1. FUROSEMIDE. [Concomitant]
     Active Substance: FUROSEMIDE
  2. MORPHINE [Concomitant]
     Active Substance: MORPHINE
  3. GLIMEPIRIDE. [Concomitant]
     Active Substance: GLIMEPIRIDE
  4. RANITIDINE. [Concomitant]
     Active Substance: RANITIDINE
  5. VENLAFAXINE [Concomitant]
     Active Substance: VENLAFAXINE HYDROCHLORIDE
  6. CABOMETYX [Suspect]
     Active Substance: CABOZANTINIB S-MALATE
     Indication: RENAL CANCER
     Dosage: 60 MG, QD
     Route: 048
     Dates: start: 20161018, end: 20161209
  7. PRAVASTATIN. [Concomitant]
     Active Substance: PRAVASTATIN
  8. DILTIAZEM. [Concomitant]
     Active Substance: DILTIAZEM
  9. FERGON [Concomitant]
     Active Substance: FERROUS GLUCONATE
  10. K-DUR [Concomitant]
     Active Substance: POTASSIUM CHLORIDE

REACTIONS (2)
  - Death [Fatal]
  - Malaise [Unknown]

NARRATIVE: CASE EVENT DATE: 20161209
